FAERS Safety Report 4778671-X (Version None)
Quarter: 2005Q3

REPORT INFORMATION
  Report Type: 
  Country: None (occurrence: None)
  Receive Date: 20050926
  Receipt Date: 20050824
  Transmission Date: 20060218
  Serious: Yes (Life-Threatening, Hospitalization)
  Sender: FDA-Public Use
  Company Number: US-MERCK-0508USA03971

PATIENT
  Age: 55 Year
  Sex: Male
  Weight: 147 kg

DRUGS (4)
  1. VYTORIN [Suspect]
     Indication: DYSLIPIDAEMIA
     Route: 048
     Dates: start: 20040914, end: 20050815
  2. VYTORIN [Suspect]
     Indication: BLOOD CHOLESTEROL INCREASED
     Route: 048
     Dates: start: 20040914, end: 20050815
  3. CIALIS [Concomitant]
     Indication: ERECTILE DYSFUNCTION
     Route: 065
     Dates: end: 20050815
  4. GLUCOTROL XL [Concomitant]
     Route: 048
     Dates: start: 20050106, end: 20050815

REACTIONS (12)
  - BACK PAIN [None]
  - CHOLELITHIASIS [None]
  - CHOLESTASIS [None]
  - DIABETIC NEUROPATHY [None]
  - EAR DISCOMFORT [None]
  - FATIGUE [None]
  - JAUNDICE CHOLESTATIC [None]
  - LACERATION [None]
  - NASAL CONGESTION [None]
  - NEPHROLITHIASIS [None]
  - PARONYCHIA [None]
  - TINNITUS [None]
